FAERS Safety Report 7700655-X (Version None)
Quarter: 2011Q3

REPORT INFORMATION
  Report Type: 
  Country: None (occurrence: None)
  Receive Date: 20110822
  Receipt Date: 20110822
  Transmission Date: 20111222
  Serious: Yes (Disabling, Other)
  Sender: FDA-Public Use
  Company Number: None

PATIENT
  Sex: Female
  Weight: 62.595 kg

DRUGS (2)
  1. LEVOFLOXACIN [Suspect]
     Indication: SKIN BACTERIAL INFECTION
     Dosage: 500 MG
     Route: 048
  2. LEVOTHYROXINE SODIUM [Concomitant]
     Route: 048

REACTIONS (4)
  - PAIN IN EXTREMITY [None]
  - ABASIA [None]
  - TENDON DISORDER [None]
  - GAIT DISTURBANCE [None]
